FAERS Safety Report 6055212-0 (Version None)
Quarter: 2009Q1

REPORT INFORMATION
  Report Type: 
  Country: None (occurrence: None)
  Receive Date: 20090122
  Receipt Date: 20090105
  Transmission Date: 20090719
  Serious: Yes (Other)
  Sender: FDA-Public Use
  Company Number: 232772K08USA

PATIENT
  Age: 61 Year
  Sex: Female
  Weight: 61 kg

DRUGS (8)
  1. REBIF [Suspect]
     Indication: MULTIPLE SCLEROSIS
     Dosage: 44 MCG, 3 IN 1 WEEKS, SUBCUTANEOUS
     Route: 058
     Dates: start: 20060501
  2. ADVIL LIQUI-GELS [Concomitant]
  3. ASPIRIN [Concomitant]
  4. RED YEAST RICE (ALL OTHER THERAPEUTIC  PRODUCTS) [Concomitant]
  5. FISH OIL (FISH OIL) [Concomitant]
  6. VITAMIN SUPPLEMENTS(VITAMINS) [Concomitant]
  7. RECLAST (ALL OTHER THERAPEUTIC PRODUCTS) [Concomitant]
  8. SYNVISC (HYALURONATE SODIUM) [Concomitant]

REACTIONS (6)
  - IMPAIRED HEALING [None]
  - INJECTION SITE HAEMORRHAGE [None]
  - INJECTION SITE NECROSIS [None]
  - OSTEOARTHRITIS [None]
  - OSTEOPOROSIS [None]
  - VASCULAR OCCLUSION [None]
